FAERS Safety Report 5154545-X (Version None)
Quarter: 2006Q4

REPORT INFORMATION
  Report Type: 
  Country: None (occurrence: None)
  Receive Date: 20061113
  Receipt Date: 20061025
  Transmission Date: 20070319
  Serious: Yes (Other)
  Sender: FDA-Public Use
  Company Number: ENTC2006-0179

PATIENT
  Age: 78 Year
  Sex: Female

DRUGS (7)
  1. STALEVO 100 [Suspect]
     Indication: PARKINSON'S DISEASE
     Dosage: 150/37,5/600 MG ORAL
     Route: 048
     Dates: start: 20060227, end: 20060428
  2. MOTILIUM [Suspect]
     Indication: DYSPEPSIA
     Dosage: 20-60 MG ORAL
     Route: 048
     Dates: start: 20060127, end: 20060512
  3. MODOPAR [Concomitant]
  4. TRIVASTAL [Concomitant]
  5. REQUIP [Concomitant]
  6. PARIET [Concomitant]
  7. PRETERAX [Concomitant]

REACTIONS (1)
  - COLITIS [None]
